FAERS Safety Report 6831960-7 (Version None)
Quarter: 2010Q3

REPORT INFORMATION
  Report Type: 
  Country: None (occurrence: None)
  Receive Date: 20100712
  Receipt Date: 20100702
  Transmission Date: 20110219
  Serious: Yes (Hospitalization)
  Sender: FDA-Public Use
  Company Number: DE-ROCHE-708372

PATIENT
  Sex: Female

DRUGS (4)
  1. TRASTUZUMAB [Suspect]
     Indication: BREAST CANCER
     Dosage: LOADING DOSE
     Route: 042
     Dates: start: 20100125
  2. TRASTUZUMAB [Suspect]
     Dosage: MAINTAINENCE DOSE
     Route: 042
     Dates: start: 20100215
  3. PACLITAXEL [Suspect]
     Indication: BREAST CANCER
     Dosage: THERAPY DURATION : 81 DAYS
     Route: 042
     Dates: start: 20091120, end: 20100208
  4. TAMOXIFEN [Concomitant]
     Dates: start: 20100325

REACTIONS (2)
  - COAGULATION TEST ABNORMAL [None]
  - ELECTROCARDIOGRAM ABNORMAL [None]
